FAERS Safety Report 8733977 (Version 6)
Quarter: 2012Q4

REPORT INFORMATION
  Report Type: 
  Country: US (occurrence: US)
  Receive Date: 20120821
  Receipt Date: 20121017
  Transmission Date: 20130627
  Serious: Yes (Hospitalization, Disabling, Other)
  Sender: FDA-Public Use
  Company Number: US-JNJFOC-20120405960

PATIENT
  Age: 55 None
  Sex: Female
  Weight: 47.17 kg

DRUGS (36)
  1. LEVAQUIN [Suspect]
     Indication: WHEEZING
     Route: 048
     Dates: start: 2008
  2. LEVAQUIN [Suspect]
     Indication: ASTHMA
     Route: 048
     Dates: start: 2008
  3. LEVAQUIN [Suspect]
     Indication: CHRONIC OBSTRUCTIVE PULMONARY DISEASE
     Route: 042
     Dates: start: 20120312, end: 20120317
  4. LEVAQUIN [Suspect]
     Indication: CHRONIC OBSTRUCTIVE PULMONARY DISEASE
     Route: 042
     Dates: start: 201103
  5. LEVAQUIN [Suspect]
     Indication: ASTHMA
     Route: 042
     Dates: start: 201103
  6. LEVAQUIN [Suspect]
     Indication: ASTHMA
     Route: 042
     Dates: start: 20120312, end: 20120317
  7. LEVAQUIN [Suspect]
     Indication: GASTRIC DISORDER
     Route: 042
     Dates: start: 201103
  8. LEVAQUIN [Suspect]
     Indication: GASTRIC DISORDER
     Route: 042
     Dates: start: 20120312, end: 20120317
  9. LEVAQUIN [Suspect]
     Indication: ABDOMINAL PAIN
     Route: 042
     Dates: start: 20120312, end: 20120317
  10. LEVAQUIN [Suspect]
     Indication: ABDOMINAL PAIN
     Route: 042
     Dates: start: 201103
  11. LEVAQUIN [Suspect]
     Indication: RESPIRATORY TRACT CONGESTION
     Route: 042
     Dates: start: 201103
  12. LEVAQUIN [Suspect]
     Indication: RESPIRATORY TRACT CONGESTION
     Route: 042
     Dates: start: 20120312, end: 20120317
  13. LEVAQUIN [Suspect]
     Indication: COLITIS
     Route: 042
     Dates: start: 201103
  14. LEVAQUIN [Suspect]
     Indication: COLITIS
     Route: 042
     Dates: start: 20120312, end: 20120317
  15. POTASSIUM [Concomitant]
     Route: 065
  16. SOLU-MEDROL [Concomitant]
     Indication: CHRONIC OBSTRUCTIVE PULMONARY DISEASE
     Route: 065
  17. XOPENEX [Concomitant]
     Indication: ASTHMA
     Route: 048
  18. VICODIN [Concomitant]
     Indication: PAIN
     Route: 048
     Dates: start: 2002
  19. ARIMIDEX [Concomitant]
     Indication: BREAST CANCER
     Route: 048
     Dates: start: 2005
  20. LISINOPRIL [Concomitant]
     Indication: HYPERTENSION
     Route: 048
  21. CADUET [Concomitant]
     Indication: HYPERTENSION
     Route: 048
     Dates: start: 2008
  22. ALBUTEROL [Concomitant]
     Indication: ASTHMA
     Dosage: as needed
     Route: 055
     Dates: start: 1997
  23. AMBIEN [Concomitant]
     Indication: SLEEP DISORDER
     Dosage: at night
     Route: 048
  24. NEXIUM [Concomitant]
     Indication: PRODUCT USED FOR UNKNOWN INDICATION
     Route: 048
  25. COUMADIN [Concomitant]
     Indication: THROMBOSIS
     Route: 048
     Dates: end: 2012
  26. COUMADIN [Concomitant]
     Indication: THROMBOSIS
     Route: 048
     Dates: start: 2012
  27. THEOPHYLLINE [Concomitant]
     Indication: ASTHMA
     Route: 048
     Dates: start: 2002
  28. VITAMIN D [Concomitant]
     Indication: RENAL DISORDER
     Route: 048
     Dates: start: 2007
  29. PREDNISOLONE [Concomitant]
     Indication: ASTHMA
     Route: 048
  30. PREDNISOLONE [Concomitant]
     Indication: ASTHMA
     Dosage: 10-60mg as needed
     Route: 048
     Dates: start: 2006
  31. ATROVENT [Concomitant]
     Indication: CHRONIC OBSTRUCTIVE PULMONARY DISEASE
     Route: 065
  32. FLUTICASONE [Concomitant]
     Dosage: 27.5ug per actuation
     Route: 045
  33. MAGNESIUM [Concomitant]
     Dosage: 10-60mg as needed
     Route: 065
  34. FUROSEMIDE [Concomitant]
     Dosage: 2 tablets as needed
     Route: 065
  35. VITAMIN D [Concomitant]
     Dosage: 2000 units
     Route: 048
     Dates: start: 20120103
  36. VITAMIN D [Concomitant]
     Dosage: 1000 units
     Route: 048

REACTIONS (15)
  - Clostridium difficile colitis [Unknown]
  - Thrombosis [Unknown]
  - Tendonitis [Unknown]
  - Musculoskeletal pain [Not Recovered/Not Resolved]
  - Adverse event [Unknown]
  - Hospitalisation [Unknown]
  - Pain in extremity [Not Recovered/Not Resolved]
  - Laryngitis [Unknown]
  - Pain [Unknown]
  - Intentional drug misuse [Unknown]
  - Arthralgia [Recovered/Resolved]
  - Blood calcium decreased [Not Recovered/Not Resolved]
  - Malaise [Not Recovered/Not Resolved]
  - Weight fluctuation [Not Recovered/Not Resolved]
  - Burning sensation [Unknown]
